FAERS Safety Report 19245013 (Version 2)
Quarter: 2021Q2

REPORT INFORMATION
  Report Type: Report from Study
  Country: None (occurrence: BR)
  Receive Date: 20210512
  Receipt Date: 20210613
  Transmission Date: 20210717
  Serious: Yes (Disabling)
  Sender: FDA-Public Use
  Company Number: BR-ABBVIE-21K-020-3899068-00

PATIENT
  Sex: Female
  Weight: 52 kg

DRUGS (3)
  1. VITAMIN C + ZINK [Concomitant]
     Indication: IMMUNOMODULATORY THERAPY
  2. VITAMIN D COMPLEX [Concomitant]
     Indication: IMMUNOMODULATORY THERAPY
  3. HUMIRA [Suspect]
     Active Substance: ADALIMUMAB
     Indication: RHEUMATOID ARTHRITIS
     Route: 058
     Dates: start: 2015, end: 20210429

REACTIONS (10)
  - Depression [Recovered/Resolved]
  - Drug ineffective [Not Recovered/Not Resolved]
  - Arthralgia [Recovering/Resolving]
  - Grip strength decreased [Recovering/Resolving]
  - Loss of personal independence in daily activities [Recovering/Resolving]
  - Drug resistance [Not Recovered/Not Resolved]
  - Insomnia [Not Recovered/Not Resolved]
  - Pain [Unknown]
  - Pain in extremity [Not Recovered/Not Resolved]
  - Therapeutic response shortened [Not Recovered/Not Resolved]

NARRATIVE: CASE EVENT DATE: 2019
